FAERS Safety Report 9528630 (Version 2)
Quarter: 2013Q3

REPORT INFORMATION
  Report Type: Spontaneous
  Country: US (occurrence: US)
  Receive Date: 20130917
  Receipt Date: 20130917
  Transmission Date: 20140515
  Serious: No
  Sender: FDA-Public Use
  Company Number: US-BANPHARM-20120127

PATIENT
  Age: 67 Year
  Sex: Female
  Weight: 59.09 kg

DRUGS (6)
  1. ZYRTEC LIQUID GELS 10 MG [Suspect]
     Indication: HYPERSENSITIVITY
     Dosage: 1DF, QD, PRN
     Route: 048
     Dates: start: 20120901, end: 20120904
  2. LISINOPRIL HCTZ 20/12.5MG [Concomitant]
     Indication: HYPERTENSION
     Dosage: 1 DAILY
     Dates: start: 20120711
  3. TRAMADOL 50MG [Concomitant]
     Indication: FIBROMYALGIA
     Dosage: 1 AS NEEDED
     Dates: start: 2009
  4. OMEPRAZOLE 20MG [Concomitant]
     Indication: GASTROOESOPHAGEAL REFLUX DISEASE
     Dosage: 1 DAILY
     Dates: start: 2009
  5. LANTIS 100UNIT [Concomitant]
     Indication: DIABETES MELLITUS
     Dosage: 1 DAILY
     Dates: start: 2009
  6. NOVOLOG 10MG/100UNIT [Concomitant]
     Indication: DIABETES MELLITUS
     Dosage: AS NEEDED
     Dates: start: 2009

REACTIONS (4)
  - Hypertension [Not Recovered/Not Resolved]
  - Heart rate increased [Not Recovered/Not Resolved]
  - Abnormal sensation in eye [Not Recovered/Not Resolved]
  - Dizziness [Recovered/Resolved]
